FAERS Safety Report 7418407-7 (Version None)
Quarter: 2011Q2

REPORT INFORMATION
  Report Type: 
  Country: None (occurrence: None)
  Receive Date: 20110415
  Receipt Date: 20110404
  Transmission Date: 20111010
  Serious: Yes (Other)
  Sender: FDA-Public Use
  Company Number: IT-PFIZER INC-2011073837

PATIENT
  Sex: Male

DRUGS (1)
  1. NICORETTE [Suspect]
     Indication: TOBACCO ABUSE
     Route: 055

REACTIONS (2)
  - DRUG DEPENDENCE [None]
  - PRODUCT QUALITY ISSUE [None]
